FAERS Safety Report 5062642-2 (Version None)
Quarter: 2006Q3

REPORT INFORMATION
  Report Type: 
  Country: None (occurrence: None)
  Receive Date: 20060724
  Receipt Date: 20060724
  Transmission Date: 20061208
  Serious: No
  Sender: FDA-Public Use
  Company Number: None

PATIENT
  Sex: Female

DRUGS (1)
  1. HUMULIN 70/30 [Suspect]
     Indication: DIABETES MELLITUS
     Dosage: 40 UNITS QAM SQ ; 5 UNITS QPM SQ
     Route: 058
     Dates: start: 20060519, end: 20060519

REACTIONS (2)
  - FALL [None]
  - HYPOGLYCAEMIA [None]
